FAERS Safety Report 18051248 (Version 1)
Quarter: 2020Q3

REPORT INFORMATION
  Report Type: Spontaneous
  Country: US (occurrence: US)
  Receive Date: 20200721
  Receipt Date: 20200721
  Transmission Date: 20201103
  Serious: Yes (Other)
  Sender: FDA-Public Use
  Company Number: US-SA-2020SA183413

PATIENT

DRUGS (1)
  1. TOUJEO [Suspect]
     Active Substance: INSULIN GLARGINE
     Indication: TYPE 2 DIABETES MELLITUS
     Dosage: 25 IU, QD (AT NIGHT)
     Route: 065

REACTIONS (3)
  - Creutzfeldt-Jakob disease [Unknown]
  - Gait inability [Unknown]
  - Product storage error [Unknown]

NARRATIVE: CASE EVENT DATE: 20200713
